FAERS Safety Report 8033163-X (Version None)
Quarter: 2012Q1

REPORT INFORMATION
  Report Type: 
  Country: None (occurrence: None)
  Receive Date: 20120110
  Receipt Date: 20120110
  Transmission Date: 20120608
  Serious: Yes (Life-Threatening, Other)
  Sender: FDA-Public Use
  Company Number: None

PATIENT
  Age: 60 Year
  Sex: Female
  Weight: 70.306 kg

DRUGS (1)
  1. ACTIVELLA [Suspect]
     Indication: MENOPAUSE
     Dosage: 1
     Route: 048
     Dates: start: 20020903, end: 20070416

REACTIONS (1)
  - BREAST CANCER STAGE II [None]
